FAERS Safety Report 12509411 (Version 1)
Quarter: 2016Q2

REPORT INFORMATION
  Report Type: Spontaneous
  Country: IT (occurrence: IT)
  Receive Date: 20160629
  Receipt Date: 20160629
  Transmission Date: 20160815
  Serious: Yes (Hospitalization)
  Sender: FDA-Public Use
  Company Number: IT-SA-2016SA116912

PATIENT
  Age: 86 Year
  Sex: Male

DRUGS (10)
  1. CLEXANE [Suspect]
     Active Substance: ENOXAPARIN SODIUM
     Indication: ANTICOAGULANT THERAPY
     Dosage: DOSE:1 UNIT(S)
     Route: 058
     Dates: start: 20150101, end: 20160214
  2. SEROQUEL [Concomitant]
     Active Substance: QUETIAPINE FUMARATE
     Route: 065
  3. TRIATEC [Concomitant]
     Active Substance: RAMIPRIL
     Dosage: TRIATEC (RAMIPRIL) - 5 MG TABLET 14 DIVISIBLE TABLETS
     Route: 048
  4. NORVASC [Concomitant]
     Active Substance: AMLODIPINE BESYLATE
     Dosage: NORVASC (AMLODIPINE) 5 MG TABLET
     Route: 065
  5. SINEMET [Concomitant]
     Active Substance: CARBIDOPA\LEVODOPA
     Dosage: SINEMET (CARBIDOPA AND LEVODOPA) 100 MG + 25 MG TABLETS
     Route: 065
  6. RIVOTRIL [Concomitant]
     Active Substance: CLONAZEPAM
     Route: 065
  7. DAPAROX [Concomitant]
     Active Substance: PAROXETINE HYDROCHLORIDE
     Route: 065
  8. LANSOPRAZOLE. [Concomitant]
     Active Substance: LANSOPRAZOLE
     Route: 065
  9. MIRTAZAPINE. [Concomitant]
     Active Substance: MIRTAZAPINE
     Route: 065
  10. PREFOLIC [Concomitant]
     Active Substance: LEUCOVORIN CALCIUM
     Route: 065

REACTIONS (2)
  - Aphasia [Unknown]
  - Cerebrovascular accident [Unknown]

NARRATIVE: CASE EVENT DATE: 20160213
